FAERS Safety Report 19589257 (Version 2)
Quarter: 2024Q4

REPORT INFORMATION
  Report Type: Spontaneous
  Country: NL (occurrence: NL)
  Receive Date: 20210721
  Receipt Date: 20241003
  Transmission Date: 20250114
  Serious: Yes (Other)
  Sender: PFIZER
  Company Number: NL-CELLTRION HEALTHCARE HUNGARY KFT-2021NL008581

PATIENT

DRUGS (2)
  1. RITUXIMAB [Suspect]
     Active Substance: RITUXIMAB
     Indication: B-cell small lymphocytic lymphoma
     Dosage: UNK
     Route: 065
  2. LEUKERAN [Concomitant]
     Active Substance: CHLORAMBUCIL
     Dosage: UNK

REACTIONS (1)
  - Capillary leak syndrome [Unknown]
